FAERS Safety Report 21259681 (Version 1)
Quarter: 2022Q3

REPORT INFORMATION
  Report Type: Spontaneous
  Country: EG (occurrence: EG)
  Receive Date: 20220826
  Receipt Date: 20220826
  Transmission Date: 20221027
  Serious: Yes (Other)
  Sender: FDA-Public Use
  Company Number: EG-SA-SAC20220824001533

PATIENT
  Age: 42 Year
  Sex: Male

DRUGS (4)
  1. TAXOTERE [Suspect]
     Active Substance: DOCETAXEL
     Dosage: 80 MG
     Dates: start: 20220526
  2. OXALIPLATIN [Suspect]
     Active Substance: OXALIPLATIN
     Dosage: 135MG
     Route: 041
     Dates: start: 20220526
  3. LEUCOVORIN CALCIUM [Suspect]
     Active Substance: LEUCOVORIN CALCIUM
     Dosage: 300MG
     Dates: start: 20220526
  4. FLUOROURACIL [Suspect]
     Active Substance: FLUOROURACIL
     Dosage: 4030 MG
     Route: 041
     Dates: start: 20220526

REACTIONS (3)
  - Laryngeal disorder [Recovered/Resolved]
  - Erythema [Recovered/Resolved]
  - Dysphagia [Recovered/Resolved]

NARRATIVE: CASE EVENT DATE: 20220526
